FAERS Safety Report 25542258 (Version 1)
Quarter: 2025Q3

REPORT INFORMATION
  Report Type: Spontaneous
  Country: US (occurrence: US)
  Receive Date: 20250711
  Receipt Date: 20250711
  Transmission Date: 20251020
  Serious: Yes (Other)
  Sender: RECKITT BENCKISER
  Company Number: US-PROD-AS2-212756134-20-25-USA-RB-0013220

PATIENT
  Age: 74 Year
  Sex: Female

DRUGS (2)
  1. MUCINEX INSTASOOTHE SORE THROAT PLUS PAIN RELIEF (HEXYLRESORCINOL) [Suspect]
     Active Substance: HEXYLRESORCINOL
     Indication: Oropharyngeal pain
     Route: 048
  2. MUCINEX INSTASOOTHE SORE THROAT PLUS PAIN RELIEF (HEXYLRESORCINOL) [Suspect]
     Active Substance: HEXYLRESORCINOL
     Indication: Cough

REACTIONS (2)
  - Gastritis [Not Recovered/Not Resolved]
  - Drug abuse [Not Recovered/Not Resolved]
